FAERS Safety Report 9678622 (Version 1)
Quarter: 2013Q4

REPORT INFORMATION
  Report Type: Spontaneous
  Country: US (occurrence: US)
  Receive Date: 20131108
  Receipt Date: 20131108
  Transmission Date: 20140711
  Serious: Yes (Other)
  Sender: FDA-Public Use
  Company Number: US-BAYER-2013-133403

PATIENT
  Sex: 0

DRUGS (2)
  1. NEXAVAR [Suspect]
  2. NEXAVAR [Suspect]
     Dosage: DOSAGE REDUCED TO HALF

REACTIONS (2)
  - Rash [Recovered/Resolved]
  - Rash [None]
